FAERS Safety Report 6216615-4 (Version None)
Quarter: 2009Q2

REPORT INFORMATION
  Report Type: 
  Country: None (occurrence: None)
  Receive Date: 20090605
  Receipt Date: 20090528
  Transmission Date: 20091009
  Serious: Yes (Other)
  Sender: FDA-Public Use
  Company Number: PHHY2009BR20922

PATIENT
  Sex: Female
  Weight: 60 kg

DRUGS (5)
  1. EXELON [Suspect]
     Indication: INSOMNIA
     Dosage: 9 MG/5 CM 2 ONCE DAILY
     Route: 062
     Dates: start: 20090525
  2. INSULIN [Concomitant]
     Indication: DIABETES MELLITUS
     Dosage: 20 IU, QD
     Route: 058
  3. DAONIL [Concomitant]
     Indication: DIABETES MELLITUS
     Dosage: 5 G, QD
     Route: 048
  4. AMARYL [Concomitant]
     Indication: DIABETES MELLITUS
     Dosage: 2 G, QD
     Route: 048
  5. ATENOLOL [Concomitant]
     Indication: HYPERTENSION
     Dosage: 50 MG, QD
     Route: 048

REACTIONS (4)
  - ABNORMAL BEHAVIOUR [None]
  - AGGRESSION [None]
  - DRUG INEFFECTIVE [None]
  - INSOMNIA [None]
